FAERS Safety Report 5979217-0 (Version None)
Quarter: 2008Q4

REPORT INFORMATION
  Report Type: 
  Country: None (occurrence: None)
  Receive Date: 20081204
  Receipt Date: 20080603
  Transmission Date: 20090506
  Serious: No
  Sender: FDA-Public Use
  Company Number: US-ABBOTT-08P-163-0455244-00

PATIENT
  Sex: Male
  Weight: 122.58 kg

DRUGS (8)
  1. TRICOR [Suspect]
     Indication: BLOOD TRIGLYCERIDES
     Route: 048
     Dates: start: 20060101
  2. TRICOR [Suspect]
     Indication: BLOOD CHOLESTEROL
  3. SIMVASTATIN [Concomitant]
     Indication: BLOOD CHOLESTEROL
     Route: 048
  4. BENECAR [Concomitant]
     Indication: HYPERTENSION
     Dosage: 40/12.5MG DAILY
     Route: 048
  5. METOPROLOL TARTRATE [Concomitant]
     Indication: HYPERTENSION
     Route: 048
  6. METOPROLOL TARTRATE [Concomitant]
     Indication: ARTERIOSCLEROSIS
  7. LOVASA FISH OIL [Concomitant]
     Indication: BLOOD TRIGLYCERIDES
     Route: 048
  8. LOVASA FISH OIL [Concomitant]
     Indication: BLOOD CHOLESTEROL

REACTIONS (2)
  - DIZZINESS [None]
  - HYPERHIDROSIS [None]
